FAERS Safety Report 22068642 (Version 1)
Quarter: 2023Q1

REPORT INFORMATION
  Report Type: Spontaneous
  Country: US (occurrence: None)
  Receive Date: 20230306
  Receipt Date: 20230306
  Transmission Date: 20230417
  Serious: Yes (Disabling)
  Sender: FDA-Public Use
  Company Number: None

PATIENT
  Age: 8 Year
  Sex: Male

DRUGS (1)
  1. CONCERTA [Suspect]
     Active Substance: METHYLPHENIDATE HYDROCHLORIDE
     Indication: Attention deficit hyperactivity disorder
     Dates: start: 20230215, end: 20230306

REACTIONS (6)
  - Drug ineffective [None]
  - Product substitution issue [None]
  - Affect lability [None]
  - Abnormal behaviour [None]
  - Disturbance in social behaviour [None]
  - Learning disorder [None]

NARRATIVE: CASE EVENT DATE: 20230305
